FAERS Safety Report 19899523 (Version 1)
Quarter: 2021Q3

REPORT INFORMATION
  Report Type: Spontaneous
  Country: US (occurrence: US)
  Receive Date: 20210930
  Receipt Date: 20210930
  Transmission Date: 20211014
  Serious: Yes (Hospitalization)
  Sender: FDA-Public Use
  Company Number: US-TOPROL-2021000216

PATIENT
  Age: 90 Year
  Sex: Female

DRUGS (4)
  1. METOPROLOL SUCCINATE. [Suspect]
     Active Substance: METOPROLOL SUCCINATE
  2. ESZOPICLONE. [Suspect]
     Active Substance: ESZOPICLONE
  3. DICYCLOMINE [Suspect]
     Active Substance: DICYCLOMINE HYDROCHLORIDE
  4. ESCITALOPRAM [Suspect]
     Active Substance: ESCITALOPRAM OXALATE

REACTIONS (3)
  - Renal cell carcinoma [Recovered/Resolved with Sequelae]
  - Nephrectomy [Recovered/Resolved with Sequelae]
  - Metaplasia [Recovered/Resolved with Sequelae]
